FAERS Safety Report 16401846 (Version 2)
Quarter: 2019Q2

REPORT INFORMATION
  Report Type: Report from Study
  Country: None (occurrence: CA)
  Receive Date: 20190607
  Receipt Date: 20190614
  Transmission Date: 20190711
  Serious: Yes (Other)
  Sender: FDA-Public Use
  Company Number: CA-ABBVIE-19K-028-2809342-00

PATIENT
  Age: 56 Year
  Sex: Female

DRUGS (2)
  1. HYDROCHLOROTHIAZIDE. [Concomitant]
     Active Substance: HYDROCHLOROTHIAZIDE
     Indication: VENTRICULAR EXTRASYSTOLES
     Dates: end: 201905
  2. HUMIRA [Suspect]
     Active Substance: ADALIMUMAB
     Indication: PSORIATIC ARTHROPATHY
     Route: 058
     Dates: start: 20121209

REACTIONS (11)
  - Colitis [Not Recovered/Not Resolved]
  - Hepatic enzyme increased [Unknown]
  - Atrial fibrillation [Unknown]
  - Hepatic steatosis [Not Recovered/Not Resolved]
  - Musculoskeletal stiffness [Not Recovered/Not Resolved]
  - Atrial fibrillation [Recovered/Resolved]
  - Blood potassium decreased [Unknown]
  - Stress [Not Recovered/Not Resolved]
  - Measles [Unknown]
  - Therapeutic response shortened [Unknown]
  - Sleep apnoea syndrome [Unknown]

NARRATIVE: CASE EVENT DATE: 201904
